FAERS Safety Report 6042099-5 (Version None)
Quarter: 2009Q1

REPORT INFORMATION
  Report Type: 
  Country: None (occurrence: None)
  Receive Date: 20090116
  Receipt Date: 20090109
  Transmission Date: 20090719
  Serious: Yes (Other)
  Sender: FDA-Public Use
  Company Number: PHEH2009US00685

PATIENT
  Age: 16 Year
  Sex: Male

DRUGS (1)
  1. FEMARA [Suspect]
     Indication: BODY HEIGHT BELOW NORMAL
     Dosage: 2.5 MG, QD
     Route: 048
     Dates: start: 20070701, end: 20080701

REACTIONS (1)
  - CARDIOMYOPATHY [None]
